FAERS Safety Report 6999217-1 (Version None)
Quarter: 2010Q3

REPORT INFORMATION
  Report Type: 
  Country: None (occurrence: None)
  Receive Date: 20100920
  Receipt Date: 20091022
  Transmission Date: 20110219
  Serious: Yes (Hospitalization)
  Sender: FDA-Public Use
  Company Number: US-ASTRAZENECA-2007UW18302

PATIENT
  Age: 11782 Day
  Sex: Male
  Weight: 76.7 kg

DRUGS (8)
  1. SEROQUEL [Suspect]
     Indication: SCHIZOPHRENIA
     Route: 048
     Dates: start: 19990201, end: 20040501
  2. SEROQUEL [Suspect]
     Indication: INSOMNIA
     Route: 048
     Dates: start: 19990201, end: 20040501
  3. HUMULIN R [Concomitant]
     Dosage: 10-30 UNITS IN THE MORNING AND 5-30 UNITS IN THE EVENING
     Dates: start: 19980210
  4. ZESTRIL [Concomitant]
     Dates: start: 20020726
  5. FLOVENT [Concomitant]
     Dosage: AS REQUIRED
     Dates: start: 20020726
  6. PRILOSEC [Concomitant]
     Dates: start: 20030815
  7. DIOVAN [Concomitant]
     Indication: BLOOD PRESSURE
     Dates: start: 20031201
  8. TOPROL-XL [Concomitant]
     Indication: BLOOD PRESSURE
     Dates: start: 20040628

REACTIONS (3)
  - DIABETES MELLITUS [None]
  - DIABETES MELLITUS INADEQUATE CONTROL [None]
  - PANCREATITIS ACUTE [None]
